FAERS Safety Report 11253024 (Version 5)
Quarter: 2016Q1

REPORT INFORMATION
  Report Type: Report from Study
  Country: CA (occurrence: CA)
  Receive Date: 20150708
  Receipt Date: 20160212
  Transmission Date: 20160525
  Serious: Yes (Hospitalization, Other)
  Sender: FDA-Public Use
  Company Number: CA-ROCHE-1439802

PATIENT
  Age: 67 Year
  Sex: Male
  Weight: 75 kg

DRUGS (8)
  1. DEXAMETHASONE. [Concomitant]
     Active Substance: DEXAMETHASONE
     Route: 065
     Dates: start: 20150309
  2. AVASTIN [Suspect]
     Active Substance: BEVACIZUMAB
     Indication: GLIOBLASTOMA
     Route: 042
     Dates: start: 20140709
  3. AVASTIN [Suspect]
     Active Substance: BEVACIZUMAB
     Dosage: STOPPED
     Route: 042
     Dates: start: 20141113
  4. DEXAMETHASONE. [Concomitant]
     Active Substance: DEXAMETHASONE
     Route: 065
  5. RANITIDINE [Concomitant]
     Active Substance: RANITIDINE\RANITIDINE HYDROCHLORIDE
  6. DEXAMETHASONE. [Concomitant]
     Active Substance: DEXAMETHASONE
     Route: 065
  7. METFORMIN [Concomitant]
     Active Substance: METFORMIN HYDROCHLORIDE
  8. DILANTIN [Concomitant]
     Active Substance: PHENYTOIN

REACTIONS (10)
  - Blood pressure increased [Unknown]
  - Nervous system disorder [Unknown]
  - Infusion related reaction [Unknown]
  - Cerebrovascular accident [Unknown]
  - Weight increased [Unknown]
  - Blood pressure increased [Not Recovered/Not Resolved]
  - Memory impairment [Not Recovered/Not Resolved]
  - Wound secretion [Not Recovered/Not Resolved]
  - Brain abscess [Recovered/Resolved]
  - Nasopharyngitis [Not Recovered/Not Resolved]

NARRATIVE: CASE EVENT DATE: 201411
